FAERS Safety Report 4715358-3 (Version None)
Quarter: 2005Q3

REPORT INFORMATION
  Report Type: 
  Country: None (occurrence: None)
  Receive Date: 20050715
  Receipt Date: 20050311
  Transmission Date: 20060218
  Serious: Yes (Hospitalization, Other)
  Sender: FDA-Public Use
  Company Number: US-MERCK-0503USA02625

PATIENT
  Age: 79 Year
  Sex: Female
  Weight: 91 kg

DRUGS (12)
  1. VIOXX [Suspect]
     Indication: ARTHRITIS
     Route: 048
     Dates: start: 20000101, end: 20040901
  2. VIOXX [Suspect]
     Indication: OSTEOARTHRITIS
     Route: 048
     Dates: start: 20000101, end: 20040901
  3. FUROSEMIDE [Concomitant]
     Route: 065
  4. TYLENOL [Concomitant]
     Route: 065
  5. POTASSIUM (UNSPECIFIED) [Concomitant]
     Route: 065
  6. HUMULIN [Concomitant]
     Route: 065
  7. DETROL LA [Concomitant]
     Route: 065
  8. PREMARIN [Concomitant]
     Route: 065
  9. MECLIZINE [Concomitant]
     Route: 065
  10. PRILOSEC [Concomitant]
     Route: 065
  11. THERAGRAN-M [Concomitant]
     Route: 065
  12. ASPIRIN [Concomitant]
     Route: 065

REACTIONS (13)
  - ANGINA UNSTABLE [None]
  - ATRIAL FIBRILLATION [None]
  - BRONCHITIS VIRAL [None]
  - CAROTID ARTERY STENOSIS [None]
  - CEREBROVASCULAR ACCIDENT [None]
  - CHEST DISCOMFORT [None]
  - DENTAL CARIES [None]
  - DIABETES MELLITUS INADEQUATE CONTROL [None]
  - ENCEPHALOPATHY [None]
  - PYREXIA [None]
  - TENDONITIS [None]
  - TOOTHACHE [None]
  - URINARY TRACT INFECTION [None]
